FAERS Safety Report 4681948-X (Version None)
Quarter: 2005Q2

REPORT INFORMATION
  Report Type: 
  Country: None (occurrence: None)
  Receive Date: 20050602
  Receipt Date: 20050520
  Transmission Date: 20051028
  Serious: Yes (Hospitalization)
  Sender: FDA-Public Use
  Company Number: 2005078875

PATIENT
  Age: 4 Month
  Sex: Male

DRUGS (1)
  1. BEXTRA [Suspect]
     Indication: ILL-DEFINED DISORDER
     Dosage: UNKNOWN (40 MG, UNKNOWN) TRANSDERMAL
     Route: 062
     Dates: start: 20050113

REACTIONS (2)
  - DRUG EXPOSURE VIA BREAST MILK [None]
  - PETECHIAE [None]
